FAERS Safety Report 14929918 (Version 2)
Quarter: 2018Q3

REPORT INFORMATION
  Report Type: Report from Study
  Country: JP (occurrence: JP)
  Receive Date: 20180523
  Receipt Date: 20180921
  Transmission Date: 20181010
  Serious: Yes (Death, Other)
  Sender: FDA-Public Use
  Company Number: JP-009507513-1804JPN002972J

PATIENT
  Age: 64 Year
  Sex: Female
  Weight: 44 kg

DRUGS (2)
  1. DEXART [Concomitant]
     Active Substance: DEXAMETHASONE SODIUM PHOSPHATE
     Indication: PALLIATIVE CARE
     Dosage: 6.6 MG, QD
     Route: 042
     Dates: end: 20180511
  2. PEMBROLIZUMAB. [Suspect]
     Active Substance: PEMBROLIZUMAB
     Indication: TRANSITIONAL CELL CARCINOMA
     Dosage: 200 MG, UNK
     Route: 041
     Dates: start: 20180411, end: 20180811

REACTIONS (2)
  - Malignant neoplasm progression [Fatal]
  - Rash [Recovered/Resolved]

NARRATIVE: CASE EVENT DATE: 2018
